FAERS Safety Report 10947176 (Version 1)
Quarter: 2015Q1

REPORT INFORMATION
  Report Type: Spontaneous
  Country: US (occurrence: None)
  Receive Date: 20150218
  Receipt Date: 20150218
  Transmission Date: 20150721
  Serious: No
  Sender: FDA-Public Use
  Company Number: 2014FE02929

PATIENT
  Age: 62 Year
  Sex: Male
  Weight: 68.9 kg

DRUGS (4)
  1. NORPACE CR (DISOPYRAMIDE PHOSPHATE) [Concomitant]
  2. PREPOPIK [Suspect]
     Active Substance: ANHYDROUS CITRIC ACID\MAGNESIUM OXIDE\SODIUM PICOSULFATE
     Indication: BOWEL PREPARATION
  3. PERCOCET(PARACETAMOL) [Concomitant]
  4. XANAX XR [Concomitant]
     Active Substance: ALPRAZOLAM

REACTIONS (3)
  - Hyperventilation [None]
  - Weight decreased [None]
  - Diarrhoea [None]

NARRATIVE: CASE EVENT DATE: 20141014
